FAERS Safety Report 7066447-2 (Version None)
Quarter: 2010Q4

REPORT INFORMATION
  Report Type: 
  Country: None (occurrence: None)
  Receive Date: 20101027
  Receipt Date: 20100106
  Transmission Date: 20110411
  Serious: No
  Sender: FDA-Public Use
  Company Number: US-WYE-H12904010

PATIENT

DRUGS (1)
  1. PREMPRO [Suspect]
     Dosage: UNKNOWN
     Route: 065
     Dates: start: 20091210, end: 20091212

REACTIONS (10)
  - AMNESIA [None]
  - CONFUSIONAL STATE [None]
  - DYSKINESIA [None]
  - HEADACHE [None]
  - HYPOAESTHESIA [None]
  - MUSCULAR WEAKNESS [None]
  - NECK PAIN [None]
  - PAIN [None]
  - PHOTOPHOBIA [None]
  - TOOTHACHE [None]
